FAERS Safety Report 6000575-5 (Version None)
Quarter: 2008Q4

REPORT INFORMATION
  Report Type: 
  Country: None (occurrence: None)
  Receive Date: 20081211
  Receipt Date: 20081126
  Transmission Date: 20090506
  Serious: Yes (Other)
  Sender: FDA-Public Use
  Company Number: 2008S1021192

PATIENT
  Age: 32 Year
  Sex: Female

DRUGS (4)
  1. OXPRENOLOL (OXPRENOLOL) [Suspect]
     Indication: HYPERTENSION
  2. FELODIPINE [Suspect]
  3. CALCITRIOL [Concomitant]
  4. CALCIUM [Concomitant]

REACTIONS (7)
  - CATHETER SITE INFECTION [None]
  - CONDITION AGGRAVATED [None]
  - DRUG EXPOSURE DURING PREGNANCY [None]
  - HYPERTENSION [None]
  - PERITONEAL DIALYSIS [None]
  - PERITONITIS BACTERIAL [None]
  - STAPHYLOCOCCAL INFECTION [None]
